FAERS Safety Report 15325081 (Version 1)
Quarter: 2018Q3

REPORT INFORMATION
  Report Type: Spontaneous
  Country: US (occurrence: US)
  Receive Date: 20180822
  Receipt Date: 20180822
  Transmission Date: 20181010
  Serious: No
  Sender: FDA-Public Use
  Company Number: None

PATIENT

DRUGS (1)
  1. VALSARTAN TABS 40 MG. GENERIC FOR: DIOVAN TABS. [Suspect]
     Active Substance: VALSARTAN
     Indication: HYPERTENSION
     Dosage: ?          OTHER DOSE:90;?
     Route: 048
     Dates: start: 20090901, end: 20180801

REACTIONS (2)
  - Breast cancer [None]
  - Metastatic lymphoma [None]
